FAERS Safety Report 4452055-6 (Version None)
Quarter: 2004Q3

REPORT INFORMATION
  Report Type: 
  Country: None (occurrence: None)
  Receive Date: 20040813
  Receipt Date: 20040420
  Transmission Date: 20050211
  Serious: No
  Sender: FDA-Public Use
  Company Number: S04-USA-03523-01

PATIENT
  Age: 77 Year
  Sex: Male

DRUGS (12)
  1. NAMENDA [Suspect]
     Indication: DEMENTIA
     Dosage: 5 MG QD PO
     Route: 048
     Dates: start: 20040330, end: 20040405
  2. NAMENDA [Suspect]
     Indication: PARKINSONISM
     Dosage: 5 MG QD PO
     Route: 048
     Dates: start: 20040330, end: 20040405
  3. NAMENDA [Suspect]
     Indication: DEMENTIA
     Dosage: 10 MG QD PO
     Route: 048
     Dates: start: 20040406, end: 20040412
  4. NAMENDA [Suspect]
     Indication: PARKINSONISM
     Dosage: 10 MG QD PO
     Route: 048
     Dates: start: 20040406, end: 20040412
  5. NAMENDA [Suspect]
     Indication: DEMENTIA
     Dosage: 15 MG QD PO
     Route: 048
     Dates: start: 20040413, end: 20040419
  6. NAMENDA [Suspect]
     Indication: PARKINSONISM
     Dosage: 15 MG QD PO
     Route: 048
     Dates: start: 20040413, end: 20040419
  7. LANOXIN [Concomitant]
  8. FLOMAX [Concomitant]
  9. DITROPAN [Concomitant]
  10. REMERON [Concomitant]
  11. MULTI-VITAMIN [Concomitant]
  12. ASPIRIN [Concomitant]

REACTIONS (2)
  - DIZZINESS [None]
  - ORTHOSTATIC HYPOTENSION [None]
